FAERS Safety Report 21313283 (Version 1)
Quarter: 2022Q3

REPORT INFORMATION
  Report Type: Spontaneous
  Country: US (occurrence: US)
  Receive Date: 20220909
  Receipt Date: 20220909
  Transmission Date: 20221027
  Serious: Yes (Other)
  Sender: FDA-Public Use
  Company Number: US-SLATE RUN PHARMACEUTICALS-22US001296

PATIENT

DRUGS (6)
  1. VANCOMYCIN HYDROCHLORIDE [Suspect]
     Active Substance: VANCOMYCIN HYDROCHLORIDE
     Indication: Septic embolus
     Dosage: UNK
     Route: 042
  2. VANCOMYCIN HYDROCHLORIDE [Suspect]
     Active Substance: VANCOMYCIN HYDROCHLORIDE
     Indication: Staphylococcal bacteraemia
     Dosage: UNK
  3. CEFTRIAXONE [Concomitant]
     Active Substance: CEFTRIAXONE
     Indication: Swelling face
  4. CLINDAMYCIN [Concomitant]
     Active Substance: CLINDAMYCIN
     Indication: Septic embolus
     Route: 042
  5. ANTIHISTAMINES NOS [Concomitant]
     Active Substance: ANTIHISTAMINES NOS
     Indication: Staphylococcal infection
  6. AMPICILLIN + SULBACTAM [Concomitant]
     Indication: Staphylococcal infection
     Route: 042

REACTIONS (10)
  - Cavernous sinus thrombosis [Recovering/Resolving]
  - Staphylococcal bacteraemia [Recovered/Resolved]
  - Petrositis [Recovered/Resolved]
  - Treatment failure [Recovered/Resolved]
  - Pleural effusion [Recovered/Resolved]
  - Tachypnoea [Unknown]
  - Hypoxia [Unknown]
  - Strabismus [Not Recovered/Not Resolved]
  - Chest pain [Unknown]
  - Vancomycin infusion reaction [Unknown]
